FAERS Safety Report 15989519 (Version 1)
Quarter: 2019Q1

REPORT INFORMATION
  Report Type: Spontaneous
  Country: US (occurrence: US)
  Receive Date: 20190221
  Receipt Date: 20190221
  Transmission Date: 20190418
  Serious: No
  Sender: FDA-Public Use
  Company Number: US-PFIZER INC-2019078825

PATIENT
  Age: 85 Year
  Sex: Female

DRUGS (8)
  1. BENZYLPENICILLIN POTASSIUM [Suspect]
     Active Substance: PENICILLIN G POTASSIUM
     Dosage: UNK
  2. PRAVASTATIN. [Suspect]
     Active Substance: PRAVASTATIN
     Dosage: UNK
  3. LOVASTATIN. [Suspect]
     Active Substance: LOVASTATIN
     Dosage: UNK
  4. WARFARIN [Suspect]
     Active Substance: WARFARIN
     Dosage: UNK
  5. ATORVASTATIN CALCIUM. [Suspect]
     Active Substance: ATORVASTATIN CALCIUM
     Dosage: UNK
  6. IODINE. [Suspect]
     Active Substance: IODINE
     Dosage: UNK
  7. GABAPENTIN. [Suspect]
     Active Substance: GABAPENTIN
     Dosage: UNK
  8. EZETIMIBE. [Suspect]
     Active Substance: EZETIMIBE
     Dosage: UNK

REACTIONS (1)
  - Drug hypersensitivity [Unknown]
